FAERS Safety Report 4558161-X (Version None)
Quarter: 2005Q1

REPORT INFORMATION
  Report Type: 
  Country: None (occurrence: None)
  Receive Date: 20050103
  Receipt Date: 20041029
  Transmission Date: 20050727
  Serious: Yes (Other)
  Sender: FDA-Public Use
  Company Number: 2004UW22426

PATIENT
  Age: 61 Year
  Sex: Female
  Weight: 65.77 kg

DRUGS (3)
  1. CRESTOR [Suspect]
     Dosage: 10 MG DAILY PO
     Route: 048
     Dates: start: 20041020
  2. SYNTHROID [Concomitant]
  3. IMIPRAM TAB [Concomitant]

REACTIONS (1)
  - RESTLESSNESS [None]
